FAERS Safety Report 7393876-X (Version None)
Quarter: 2011Q2

REPORT INFORMATION
  Report Type: 
  Country: None (occurrence: None)
  Receive Date: 20110405
  Receipt Date: 20110322
  Transmission Date: 20111010
  Serious: Yes (Other)
  Sender: FDA-Public Use
  Company Number: GB-JNJFOC-20101109030

PATIENT
  Age: 36 Year
  Sex: Female

DRUGS (3)
  1. REMICADE [Suspect]
     Indication: PSORIASIS
     Route: 042
  2. ETANERCEPT [Suspect]
     Indication: PSORIASIS
     Route: 058
  3. ADALIMUMAB [Suspect]
     Indication: PSORIASIS
     Route: 058

REACTIONS (1)
  - LUPUS-LIKE SYNDROME [None]
